FAERS Safety Report 5630906-7 (Version None)
Quarter: 2008Q1

REPORT INFORMATION
  Report Type: 
  Country: None (occurrence: None)
  Receive Date: 20080219
  Receipt Date: 20080207
  Transmission Date: 20080703
  Serious: Yes (Other)
  Sender: FDA-Public Use
  Company Number: AT-PFIZER INC-2008011734

PATIENT
  Age: 24 Year
  Sex: Female

DRUGS (5)
  1. TRESLEEN [Suspect]
     Dosage: DAILY DOSE:100MG-TEXT:DAILY
     Route: 048
  2. CLOZAPINE [Interacting]
     Dosage: DAILY DOSE:475MG-TEXT:DAILY
     Route: 048
  3. AKINETON [Concomitant]
     Route: 048
  4. OXAZEPAM [Concomitant]
     Route: 048
  5. AMITRIPTYLINE HCL [Concomitant]
     Route: 048

REACTIONS (4)
  - AKATHISIA [None]
  - DRUG INTERACTION [None]
  - TREMOR [None]
  - VISUAL DISTURBANCE [None]
